FAERS Safety Report 9768319 (Version 1)
Quarter: 2013Q4

REPORT INFORMATION
  Report Type: Spontaneous
  Country: DK (occurrence: FR)
  Receive Date: 20131217
  Receipt Date: 20131217
  Transmission Date: 20140711
  Serious: Yes (Hospitalization)
  Sender: FDA-Public Use
  Company Number: FR-FRI-1000052287

PATIENT
  Age: 67 Year
  Sex: Female

DRUGS (7)
  1. ESCITALOPRAM [Suspect]
     Indication: MAJOR DEPRESSION
     Dosage: 20 MG
     Route: 048
     Dates: start: 20131107
  2. ESCITALOPRAM [Suspect]
     Indication: BIPOLAR DISORDER
     Dosage: 30 MG
     Route: 048
     Dates: start: 20131114
  3. ESCITALOPRAM [Suspect]
     Dosage: 20 MG
     Route: 048
     Dates: end: 20131118
  4. SERESTA [Concomitant]
     Dosage: 70 MG
     Route: 048
     Dates: start: 2013
  5. IMOVANE [Concomitant]
     Dosage: 7.5 MG
     Route: 048
     Dates: start: 2013
  6. LEVOTHYROX [Concomitant]
     Dosage: 12.5 MCG
     Route: 048
     Dates: start: 2013
  7. VOGALENE [Concomitant]
     Route: 048
     Dates: start: 20131115, end: 20131119

REACTIONS (5)
  - Hypertonia [Recovered/Resolved]
  - Hyponatraemia [Recovered/Resolved]
  - Mydriasis [Recovered/Resolved]
  - Hyperreflexia [Recovered/Resolved]
  - Prescribed overdose [Recovered/Resolved]
